FAERS Safety Report 6159631-3 (Version None)
Quarter: 2009Q2

REPORT INFORMATION
  Report Type: 
  Country: None (occurrence: None)
  Receive Date: 20090420
  Receipt Date: 20090414
  Transmission Date: 20091009
  Serious: Yes (Other)
  Sender: FDA-Public Use
  Company Number: CH-JNJFOC-20090402262

PATIENT
  Age: 18 Year
  Sex: Female

DRUGS (2)
  1. RISPERDAL [Suspect]
     Route: 048
  2. RISPERDAL [Suspect]
     Indication: MILD MENTAL RETARDATION
     Route: 048

REACTIONS (3)
  - DIZZINESS [None]
  - MENORRHAGIA [None]
  - MENSTRUATION DELAYED [None]
